FAERS Safety Report 18532397 (Version 1)
Quarter: 2020Q4

REPORT INFORMATION
  Report Type: Spontaneous
  Country: US (occurrence: US)
  Receive Date: 20201123
  Receipt Date: 20201123
  Transmission Date: 20210114
  Serious: Yes (Other)
  Sender: FDA-Public Use
  Company Number: US-CIPLA LTD.-2020US08759

PATIENT

DRUGS (3)
  1. MELOXICAM. [Suspect]
     Active Substance: MELOXICAM
     Indication: PAIN MANAGEMENT
     Dosage: 15 MILLIGRAM, QD
     Route: 065
  2. ASPIRIN EC [Interacting]
     Active Substance: ASPIRIN
     Indication: THROMBOSIS PROPHYLAXIS
     Dosage: UNK
     Route: 065
  3. ASPIRIN EC [Interacting]
     Active Substance: ASPIRIN
     Dosage: 81 MILLIGRAM, BID (DOSE REDUCED)
     Route: 065

REACTIONS (3)
  - Drug interaction [Unknown]
  - Inappropriate schedule of product administration [Unknown]
  - Pulmonary embolism [Unknown]
